FAERS Safety Report 5425400-2 (Version None)
Quarter: 2007Q3

REPORT INFORMATION
  Report Type: 
  Country: None (occurrence: None)
  Receive Date: 20070824
  Receipt Date: 20070806
  Transmission Date: 20080115
  Serious: No
  Sender: FDA-Public Use
  Company Number: US-BOEHRINGER INGELHEIM PHARMACEUTICALS, INC.-2007-BP-17847BP

PATIENT
  Sex: Female

DRUGS (5)
  1. SPIRIVA [Suspect]
     Indication: ASTHMA
     Route: 055
     Dates: start: 20070710, end: 20070712
  2. ALLEGRA [Concomitant]
     Indication: MULTIPLE ALLERGIES
  3. SINGULAIR [Concomitant]
     Indication: MULTIPLE ALLERGIES
  4. PROVENTIL [Concomitant]
     Indication: ASTHMA
  5. ZESTORETIC [Concomitant]

REACTIONS (6)
  - GLOSSITIS [None]
  - GLOSSODYNIA [None]
  - HYPOAESTHESIA ORAL [None]
  - LIP PAIN [None]
  - PHARYNGOLARYNGEAL PAIN [None]
  - SWOLLEN TONGUE [None]
